FAERS Safety Report 6403121-7 (Version None)
Quarter: 2009Q4

REPORT INFORMATION
  Report Type: 
  Country: None (occurrence: None)
  Receive Date: 20091016
  Receipt Date: 20091009
  Transmission Date: 20100525
  Serious: Yes (Other)
  Sender: FDA-Public Use
  Company Number: PHEH2009US13460

PATIENT
  Sex: Male

DRUGS (8)
  1. ENABLEX [Suspect]
     Dosage: 7.5 MG, UNK
  2. COUMADIN [Suspect]
  3. METOPROLOL TARTRATE [Concomitant]
  4. PREDNISONE [Concomitant]
  5. ZETIA [Concomitant]
  6. SPIRIVA [Concomitant]
  7. ADVAIR DISKUS 100/50 [Concomitant]
  8. CENTRUM [Concomitant]

REACTIONS (3)
  - COAGULATION TEST ABNORMAL [None]
  - HAEMORRHAGE [None]
  - SURGERY [None]
